FAERS Safety Report 7170601-9 (Version None)
Quarter: 2010Q4

REPORT INFORMATION
  Report Type: 
  Country: None (occurrence: None)
  Receive Date: 20101217
  Receipt Date: 20101208
  Transmission Date: 20110411
  Serious: Yes (Congenital Anomaly)
  Sender: FDA-Public Use
  Company Number: A0814851A

PATIENT
  Sex: Male
  Weight: 3.3 kg

DRUGS (2)
  1. PAXIL [Suspect]
     Dosage: 20MG UNKNOWN
  2. PAROXETINE HCL [Suspect]
     Dosage: 20MG UNKNOWN

REACTIONS (4)
  - CONGENITAL ANOMALY [None]
  - DRUG EXPOSURE DURING PREGNANCY [None]
  - MULTIPLE CONGENITAL ABNORMALITIES [None]
  - VENTRICULAR SEPTAL DEFECT [None]
